FAERS Safety Report 4821533-X (Version None)
Quarter: 2005Q4

REPORT INFORMATION
  Report Type: 
  Country: None (occurrence: None)
  Receive Date: 20051103
  Receipt Date: 20051021
  Transmission Date: 20060501
  Serious: Yes (Other)
  Sender: FDA-Public Use
  Company Number: 2005BI016523

PATIENT
  Age: 39 Year
  Sex: Female

DRUGS (3)
  1. AVONEX [Suspect]
     Indication: MULTIPLE SCLEROSIS
     Dosage: 30 UG;QW;IM
     Route: 030
     Dates: start: 20050629
  2. TRILEPTAL [Concomitant]
  3. DILANTIN [Concomitant]

REACTIONS (3)
  - COMPLEX PARTIAL SEIZURES [None]
  - CONTUSION [None]
  - PETIT MAL EPILEPSY [None]
